FAERS Safety Report 8829865 (Version 2)
Quarter: 2014Q3

REPORT INFORMATION
  Report Type: Report from Study
  Country: US (occurrence: US)
  Receive Date: 20121008
  Receipt Date: 20140827
  Transmission Date: 20150326
  Serious: Yes (Death, Hospitalization, Other)
  Sender: FDA-Public Use
  Company Number: US-ROCHE-1131995

PATIENT
  Age: 77 Year
  Sex: Female

DRUGS (3)
  1. ZANTAC [Concomitant]
     Active Substance: RANITIDINE HYDROCHLORIDE
  2. RITUXAN [Suspect]
     Active Substance: RITUXIMAB
     Indication: OFF LABEL USE
  3. RITUXAN [Suspect]
     Active Substance: RITUXIMAB
     Indication: MANTLE CELL LYMPHOMA
     Route: 042
     Dates: start: 19981006, end: 19981019

REACTIONS (17)
  - Sepsis [Unknown]
  - Contusion [Unknown]
  - Arthralgia [Unknown]
  - Haematoma [Unknown]
  - Respiratory rate increased [Unknown]
  - Ecchymosis [Unknown]
  - Death [Fatal]
  - Asthenia [Unknown]
  - Hypoaesthesia oral [Unknown]
  - Oedema peripheral [Unknown]
  - Pain [Unknown]
  - Joint swelling [Unknown]
  - Cranial nerve disorder [Unknown]
  - Hypoaesthesia [Unknown]
  - Leukopenia [Unknown]
  - Body temperature increased [Unknown]
  - Haemorrhoids [Unknown]

NARRATIVE: CASE EVENT DATE: 19981006
